FAERS Safety Report 7416769-8 (Version None)
Quarter: 2011Q2

REPORT INFORMATION
  Report Type: 
  Country: None (occurrence: None)
  Receive Date: 20110415
  Receipt Date: 20110408
  Transmission Date: 20111010
  Serious: No
  Sender: FDA-Public Use
  Company Number: US-BIOGENIDEC-2011BI013167

PATIENT
  Sex: Female

DRUGS (1)
  1. AVONEX [Suspect]
     Indication: MULTIPLE SCLEROSIS
     Route: 030
     Dates: start: 20100813

REACTIONS (5)
  - NAUSEA [None]
  - MULTIPLE SCLEROSIS RELAPSE [None]
  - MUSCLE TWITCHING [None]
  - DIZZINESS [None]
  - PARAESTHESIA [None]
